FAERS Safety Report 16029773 (Version 1)
Quarter: 2019Q1

REPORT INFORMATION
  Report Type: Spontaneous
  Country: US (occurrence: US)
  Receive Date: 20190205
  Receipt Date: 20190205
  Transmission Date: 20190418
  Serious: No
  Sender: FDA-Public Use
  Company Number: None

PATIENT
  Age: 83 Year
  Sex: Female

DRUGS (5)
  1. REPATHA [Suspect]
     Active Substance: EVOLOCUMAB
     Indication: HYPERLIPIDAEMIA
     Route: 058
     Dates: start: 201802
  2. REPATHA [Suspect]
     Active Substance: EVOLOCUMAB
     Indication: CHRONIC KIDNEY DISEASE
  3. REPATHA [Suspect]
     Active Substance: EVOLOCUMAB
     Indication: NEPHROTIC SYNDROME
     Route: 058
     Dates: start: 201802
  4. REPATHA [Suspect]
     Active Substance: EVOLOCUMAB
     Indication: PROSTATIC MASS
  5. REPATHA [Suspect]
     Active Substance: EVOLOCUMAB
     Indication: CHRONIC KIDNEY DISEASE
     Route: 058
     Dates: start: 201802

REACTIONS (2)
  - Injection site warmth [None]
  - Dyspnoea [None]
